FAERS Safety Report 21729970 (Version 2)
Quarter: 2023Q1

REPORT INFORMATION
  Report Type: Spontaneous
  Country: MY (occurrence: MY)
  Receive Date: 20221214
  Receipt Date: 20230206
  Transmission Date: 20230418
  Serious: Yes (Other)
  Sender: FDA-Public Use
  Company Number: MY-BoehringerIngelheim-2022-BI-207907

PATIENT
  Age: 93 Year
  Sex: Male

DRUGS (2)
  1. OFEV [Suspect]
     Active Substance: NINTEDANIB
     Indication: Combined pulmonary fibrosis and emphysema
     Route: 048
     Dates: start: 20210914, end: 20211013
  2. OFEV [Suspect]
     Active Substance: NINTEDANIB
     Dates: start: 20211014, end: 20211029

REACTIONS (1)
  - Intestinal obstruction [Recovering/Resolving]
